FAERS Safety Report 6256187-1 (Version None)
Quarter: 2009Q3

REPORT INFORMATION
  Report Type: 
  Country: None (occurrence: None)
  Receive Date: 20090706
  Receipt Date: 20090626
  Transmission Date: 20100115
  Serious: Yes (Other)
  Sender: FDA-Public Use
  Company Number: PHHY2009BR26135

PATIENT
  Sex: Female

DRUGS (10)
  1. FORASEQ [Suspect]
     Indication: BRONCHITIS
     Dosage: UNK
     Dates: start: 20080101
  2. FORASEQ [Suspect]
     Dosage: 1 CAPSULE DAILY
     Dates: start: 20090101
  3. FORASEQ [Suspect]
     Dosage: 1 DF, BID, MORNING AND NIGHT
  4. TANDRILAX [Concomitant]
     Dosage: UNK
     Dates: start: 20050101
  5. FORMOTEROL FUMARATE [Concomitant]
     Dosage: UNK
  6. KETOPROFEN [Concomitant]
     Dosage: UNK
     Dates: start: 20050101
  7. FRONTAL [Concomitant]
     Dosage: 2 MG AT NIGHT
     Route: 048
     Dates: start: 20090301
  8. CLONAZEPAM [Concomitant]
     Dosage: UNK
     Dates: end: 20090301
  9. RANITIDINE [Concomitant]
     Dosage: UNK
     Route: 048
     Dates: start: 20050101
  10. OMEPRAZOLE [Concomitant]
     Dosage: UNK
     Route: 048
     Dates: start: 20050101

REACTIONS (3)
  - CORONARY ARTERY OCCLUSION [None]
  - DYSPNOEA [None]
  - INTERVERTEBRAL DISC PROTRUSION [None]
